FAERS Safety Report 26096592 (Version 1)
Quarter: 2025Q4

REPORT INFORMATION
  Report Type: Spontaneous
  Country: CH (occurrence: CH)
  Receive Date: 20251127
  Receipt Date: 20251127
  Transmission Date: 20260118
  Serious: Yes (Hospitalization, Other)
  Sender: JOHNSON AND JOHNSON
  Company Number: None

PATIENT
  Age: 81 Year
  Sex: Male
  Weight: 70.8 kg

DRUGS (11)
  1. TALVEY [Suspect]
     Active Substance: TALQUETAMAB-TGVS
     Indication: Plasmablastic lymphoma
     Route: 058
     Dates: start: 20250624
  2. TALVEY [Suspect]
     Active Substance: TALQUETAMAB-TGVS
     Route: 058
     Dates: start: 20250627
  3. TALVEY [Suspect]
     Active Substance: TALQUETAMAB-TGVS
     Route: 058
     Dates: start: 20250701
  4. TALVEY [Suspect]
     Active Substance: TALQUETAMAB-TGVS
     Route: 058
     Dates: start: 20250715
  5. TALVEY [Suspect]
     Active Substance: TALQUETAMAB-TGVS
     Route: 058
     Dates: start: 20250722
  6. ASPIRIN [Concomitant]
     Active Substance: ASPIRIN
     Indication: Product used for unknown indication
     Route: 048
  7. ALLOPURINOL [Concomitant]
     Active Substance: ALLOPURINOL
     Indication: Product used for unknown indication
     Route: 048
  8. DAPAGLIFLOZIN [Concomitant]
     Active Substance: DAPAGLIFLOZIN
     Indication: Product used for unknown indication
     Route: 048
  9. CRESTOR [Concomitant]
     Active Substance: ROSUVASTATIN CALCIUM
     Indication: Product used for unknown indication
     Route: 048
  10. BACTRIM [Concomitant]
     Active Substance: SULFAMETHOXAZOLE\TRIMETHOPRIM
     Indication: Product used for unknown indication
     Dosage: 1 TABLETTE 3 MAL W?CHENTLICH
     Route: 048
  11. VALTREX [Concomitant]
     Active Substance: VALACYCLOVIR HYDROCHLORIDE
     Indication: Product used for unknown indication
     Route: 048

REACTIONS (2)
  - Mucosal inflammation [Recovered/Resolved]
  - Off label use [Unknown]

NARRATIVE: CASE EVENT DATE: 20250708
